FAERS Safety Report 4561421-X (Version None)
Quarter: 2005Q1

REPORT INFORMATION
  Report Type: 
  Country: None (occurrence: None)
  Receive Date: 20050126
  Receipt Date: 20041028
  Transmission Date: 20050727
  Serious: Yes (Other)
  Sender: FDA-Public Use
  Company Number: PHFR2004GB04043

PATIENT
  Age: 6 Year
  Sex: Female
  Weight: 22 kg

DRUGS (6)
  1. TACROLIMUS [Concomitant]
  2. SIMVASTATIN [Interacting]
     Indication: LIPIDS INCREASED
     Dosage: 5 MG/DAY
     Route: 048
     Dates: start: 20040524, end: 20040712
  3. PREDNISOLONE [Concomitant]
     Indication: NEPHROTIC SYNDROME
     Dosage: 30 MG ALTERNATE DAYS
     Route: 048
  4. PREDNISOLONE [Concomitant]
     Dosage: 10 MG ON ALTERNATE DAYS
     Route: 048
  5. PENICILLIN V [Concomitant]
     Indication: PROPHYLAXIS
     Route: 048
     Dates: start: 20040325
  6. NEORAL [Suspect]
     Indication: NEPHROTIC SYNDROME
     Dosage: 120 MG/DAY
     Route: 048
     Dates: start: 20040328, end: 20041101

REACTIONS (1)
  - BLOOD CREATINE PHOSPHOKINASE INCREASED [None]
